FAERS Safety Report 4417012-4 (Version None)
Quarter: 2004Q3

REPORT INFORMATION
  Report Type: 
  Country: None (occurrence: None)
  Receive Date: 20040802
  Receipt Date: 20040721
  Transmission Date: 20050211
  Serious: Yes (Other)
  Sender: FDA-Public Use
  Company Number: HQWYE322322JUL04

PATIENT
  Age: 61 Year
  Sex: Male
  Weight: 68.1 kg

DRUGS (6)
  1. MYLOTARG [Suspect]
     Indication: ACUTE MYELOID LEUKAEMIA
     Dosage: 6 MG/M^2, INTRAVENOUS
     Route: 042
     Dates: start: 20040720, end: 20040720
  2. ALLOPURINOL [Concomitant]
  3. SERTRALINE HYDROCHLORIDE [Concomitant]
  4. OMEPRAZOLE [Concomitant]
  5. ATOVAQUONE [Concomitant]
  6. VANCOMYCIN [Concomitant]

REACTIONS (4)
  - BRADYCARDIA [None]
  - ELECTROCARDIOGRAM ABNORMAL [None]
  - INFUSION RELATED REACTION [None]
  - MYOCARDIAL ISCHAEMIA [None]
